FAERS Safety Report 9544301 (Version 1)
Quarter: 2013Q3

REPORT INFORMATION
  Report Type: Report from Study
  Country: US (occurrence: US)
  Receive Date: 20130923
  Receipt Date: 20130923
  Transmission Date: 20140515
  Serious: Yes (Hospitalization)
  Sender: FDA-Public Use
  Company Number: US-ROCHE-1278470

PATIENT
  Sex: Female
  Weight: 93.6 kg

DRUGS (39)
  1. PERJETA [Suspect]
     Indication: NEOPLASM MALIGNANT
     Dosage: OVER 60 MINUTES
     Route: 042
     Dates: start: 20121221
  2. PERJETA [Suspect]
     Dosage: OVER 60 MINUTES
     Route: 042
     Dates: start: 20130115
  3. HERCEPTIN [Suspect]
     Indication: BREAST CANCER
     Dosage: OVER 30 MINUTES
     Route: 042
     Dates: start: 20121221
  4. HERCEPTIN [Suspect]
     Dosage: OVER 30 MINUTES
     Route: 042
     Dates: start: 20130115
  5. HERCEPTIN [Suspect]
     Dosage: OVER 30 MINUTES
     Route: 042
     Dates: start: 20130205
  6. HERCEPTIN [Suspect]
     Dosage: OVER 30 MINUTES
     Route: 042
     Dates: start: 20130212
  7. HERCEPTIN [Suspect]
     Dosage: OVER 30 MINUTES
     Route: 042
     Dates: start: 20130219
  8. HERCEPTIN [Suspect]
     Dosage: OVER 30 MINUTES
     Route: 042
     Dates: start: 20130226
  9. HERCEPTIN [Suspect]
     Dosage: OVER 30 MINUTES
     Route: 042
     Dates: start: 20130305
  10. HERCEPTIN [Suspect]
     Dosage: OVER 30 MINUTES
     Route: 042
     Dates: start: 20130312
  11. HERCEPTIN [Suspect]
     Dosage: OVER 30 MINUTES
     Route: 042
     Dates: start: 20130319
  12. HERCEPTIN [Suspect]
     Dosage: OVER 30 MINUTES
     Route: 042
     Dates: start: 20130402
  13. GRANISETRON [Concomitant]
     Route: 048
     Dates: start: 20121221
  14. GRANISETRON [Concomitant]
     Route: 048
     Dates: start: 20130115
  15. ACETAMINOPHEN [Concomitant]
     Route: 048
     Dates: start: 20121221
  16. ACETAMINOPHEN [Concomitant]
     Route: 048
     Dates: start: 20130115
  17. ACETAMINOPHEN [Concomitant]
     Route: 048
     Dates: start: 20130219
  18. DOCETAXEL [Concomitant]
     Route: 042
     Dates: start: 20121221
  19. DEXAMETHASONE [Concomitant]
     Dosage: TWICE A DAYX 3 DAYS BEGINS DAY PRIOR TO NEXT CHEMO
     Route: 048
  20. DEXAMETHASONE [Concomitant]
     Dosage: TWICE A DAYX 3 DAYS BEGINS DAY PRIOR TO NEXT CHEMO
     Route: 048
     Dates: start: 20130115
  21. PROCHLORPERAZINE [Concomitant]
     Dosage: EVERY 8 HRS AS NEEDED FOR NAUSEA
     Route: 048
  22. PROCHLORPERAZINE [Concomitant]
     Dosage: EVERY 8 HRS AS NEEDED FOR NAUSEA
     Route: 048
     Dates: start: 20130115
  23. PROCHLORPERAZINE [Concomitant]
     Route: 048
     Dates: start: 20130205
  24. PROCHLORPERAZINE [Concomitant]
     Route: 048
     Dates: start: 20130219
  25. PROCHLORPERAZINE [Concomitant]
     Route: 048
     Dates: start: 20130226
  26. PROCHLORPERAZINE [Concomitant]
     Route: 048
     Dates: start: 20130402
  27. PROCHLORPERAZINE [Concomitant]
     Route: 048
     Dates: start: 20130212
  28. ONDANSETRON [Concomitant]
     Dosage: DAILY X 2
     Route: 048
     Dates: start: 20121221
  29. ONDANSETRON [Concomitant]
     Dosage: DAILY X 2
     Route: 048
     Dates: start: 20130115
  30. VINORELBINE [Concomitant]
     Route: 042
     Dates: start: 20130205
  31. VINORELBINE [Concomitant]
     Route: 042
     Dates: start: 20130212
  32. VINORELBINE [Concomitant]
     Route: 042
     Dates: start: 20130219
  33. VINORELBINE [Concomitant]
     Route: 042
     Dates: start: 20130226
  34. VINORELBINE [Concomitant]
     Route: 042
     Dates: start: 20130402
  35. LISINOPRIL [Concomitant]
     Dosage: DAILY
     Route: 065
  36. TRAMADOL [Concomitant]
     Indication: PAIN
     Dosage: EVERY 6-8 HRS AS NEEDED
     Route: 048
  37. CIPRO [Concomitant]
     Dosage: TWICE A DAY FOR 5 DAYS
     Route: 048
  38. PRILOSEC [Concomitant]
     Route: 065
  39. HYDROCHLOROTHIAZIDE [Concomitant]

REACTIONS (15)
  - Dehydration [Unknown]
  - Hypokalaemia [Unknown]
  - Urinary tract infection [Unknown]
  - Musculoskeletal pain [Unknown]
  - Local swelling [Unknown]
  - Respiratory disorder [Unknown]
  - Disease recurrence [Unknown]
  - Decreased appetite [Unknown]
  - Fatigue [Unknown]
  - Asthenia [Unknown]
  - Weight increased [Unknown]
  - Rash [Unknown]
  - Folliculitis [Unknown]
  - Drug intolerance [Unknown]
  - Disease progression [Unknown]
